FAERS Safety Report 10271764 (Version 1)
Quarter: 2014Q3

REPORT INFORMATION
  Report Type: Spontaneous
  Country: US (occurrence: US)
  Receive Date: 20140701
  Receipt Date: 20140701
  Transmission Date: 20150326
  Serious: No
  Sender: FDA-Public Use
  Company Number: -SAAVPROD-CERZ-1003096

PATIENT
  Age: 79 Year
  Sex: Female

DRUGS (1)
  1. IMIGLUCERASE [Suspect]
     Active Substance: IMIGLUCERASE
     Indication: GAUCHER^S DISEASE
     Dosage: 4400 U, Q4W DOSE:4400 UNIT(S)
     Route: 042
     Dates: start: 1998

REACTIONS (2)
  - Dyspnoea [Unknown]
  - Cough [Unknown]
